FAERS Safety Report 10048640 (Version 1)
Quarter: 2014Q1

REPORT INFORMATION
  Report Type: Spontaneous
  Country: US (occurrence: US)
  Receive Date: 20140331
  Receipt Date: 20140331
  Transmission Date: 20141002
  Serious: No
  Sender: FDA-Public Use
  Company Number: US-PFIZER INC-2014090282

PATIENT
  Sex: Female

DRUGS (3)
  1. LYRICA [Suspect]
     Dosage: 75 MG, 1X/DAY
     Dates: start: 201310
  2. LYRICA [Suspect]
     Dosage: 75 MG, 2X/DAY
  3. LYRICA [Suspect]
     Dosage: UNK

REACTIONS (4)
  - Stomatitis [Unknown]
  - Oral pain [Unknown]
  - Oral discomfort [Unknown]
  - Therapeutic response unexpected [Unknown]
